FAERS Safety Report 5431675-6 (Version None)
Quarter: 2007Q3

REPORT INFORMATION
  Report Type: 
  Country: None (occurrence: None)
  Receive Date: 20070830
  Receipt Date: 20070821
  Transmission Date: 20080115
  Serious: Yes (Other)
  Sender: FDA-Public Use
  Company Number: JP-SANOFI-SYNTHELABO-A01200709608

PATIENT
  Age: 50 Year
  Sex: Male

DRUGS (3)
  1. FLUOROURACIL [Suspect]
     Route: 042
  2. LEUCOVORIN CALCIUM [Suspect]
     Route: 042
  3. OXALIPLATIN [Suspect]
     Indication: LARGE INTESTINE CARCINOMA
     Route: 042

REACTIONS (1)
  - GUILLAIN-BARRE SYNDROME [None]
